FAERS Safety Report 15192028 (Version 1)
Quarter: 2018Q3

REPORT INFORMATION
  Report Type: Spontaneous
  Country: JP (occurrence: JP)
  Receive Date: 20180724
  Receipt Date: 20180724
  Transmission Date: 20181010
  Serious: Yes (Hospitalization)
  Sender: FDA-Public Use
  Company Number: JP-DSJP-DSJ-2018-126572AA

PATIENT

DRUGS (20)
  1. REGUNEAL LCA [Concomitant]
     Active Substance: CALCIUM CHLORIDE\DEXTROSE MONOHYDRATE\HYDROCHLORIC ACID\MAGNESIUM CHLORIDE\SODIUM BICARBONATE\SODIUM CHLORIDE\SODIUM HYDROXIDE\SODIUM LACTATE
     Dosage: UNK
     Route: 065
  2. FLUITRAN [Suspect]
     Active Substance: TRICHLORMETHIAZIDE
     Indication: END STAGE RENAL DISEASE
     Dosage: 2 MG, TID
     Route: 048
  3. OLMETEC OD [Suspect]
     Active Substance: OLMESARTAN MEDOXOMIL
     Indication: HYPERTENSION
     Dosage: 20 MG, QD
     Route: 048
  4. CALBLOCK [Suspect]
     Active Substance: AZELNIDIPINE
     Indication: HYPERTENSION
  5. EXTRANEAL [Suspect]
     Active Substance: CALCIUM CHLORIDE\ICODEXTRIN\MAGNESIUM CHLORIDE\SODIUM CHLORIDE\SODIUM LACTATE
     Dosage: UNK
     Route: 065
  6. MIYA?BM [Concomitant]
     Active Substance: CLOSTRIDIUM BUTYRICUM SPORES STRAIN M-55
     Dosage: 40 MG, TID
     Route: 065
  7. BI SIFROL [Concomitant]
     Active Substance: PRAMIPEXOLE
     Dosage: 0.125 MG, BID
     Route: 065
  8. ZETIA [Concomitant]
     Active Substance: EZETIMIBE
     Dosage: 10 MG, QD
     Route: 048
  9. POLAPREZINC [Concomitant]
     Active Substance: POLAPREZINC
     Dosage: 75 ML, BID
     Route: 048
  10. ESTRANA [Concomitant]
     Active Substance: ESTRADIOL
     Dosage: UNK
     Route: 065
  11. OLMETEC OD [Suspect]
     Active Substance: OLMESARTAN MEDOXOMIL
     Dosage: 10 MG, QD
     Route: 048
  12. FUROSEMIDE. [Suspect]
     Active Substance: FUROSEMIDE
     Indication: END STAGE RENAL DISEASE
     Dosage: 40 MG, TID
     Route: 048
  13. CARDENALIN [Suspect]
     Active Substance: DOXAZOSIN MESYLATE
     Indication: HYPERTENSION
     Dosage: 4 MG, BID
     Route: 048
  14. REGPARA [Concomitant]
     Active Substance: CINACALCET HYDROCHLORIDE
     Dosage: 25 MG, QD
     Route: 048
  15. PRECIPITATED CALCIUM CARBONATE [Concomitant]
     Active Substance: CALCIUM CARBONATE
     Dosage: 1500 MG, TID
     Route: 048
  16. CALONAL [Concomitant]
     Active Substance: ACETAMINOPHEN
     Dosage: 500 MG, BID
     Route: 065
  17. CALBLOCK [Suspect]
     Active Substance: AZELNIDIPINE
     Indication: BLOOD PRESSURE INCREASED
     Dosage: 16 MG, QD
     Route: 048
     Dates: start: 20170526, end: 20170527
  18. ALFACALCIDOL [Concomitant]
     Active Substance: ALFACALCIDOL
     Dosage: 0.5 ?G, QD
     Route: 048
  19. RABEPRAZOLE NA [Concomitant]
     Active Substance: RABEPRAZOLE SODIUM
     Dosage: 10 MG, QD
     Route: 048
  20. ENBREL [Concomitant]
     Active Substance: ETANERCEPT
     Dosage: 50 MG, ONCE EVERY 1 WK
     Route: 065

REACTIONS (2)
  - Ascites [Recovered/Resolved]
  - Colitis ischaemic [Recovering/Resolving]

NARRATIVE: CASE EVENT DATE: 20170527
